FAERS Safety Report 25402056 (Version 1)
Quarter: 2025Q2

REPORT INFORMATION
  Report Type: Report from Study
  Country: ES (occurrence: ES)
  Receive Date: 20250605
  Receipt Date: 20250605
  Transmission Date: 20250717
  Serious: Yes (Other)
  Sender: UCB
  Company Number: ES-UCBSA-2025032105

PATIENT

DRUGS (1)
  1. CERTOLIZUMAB PEGOL [Suspect]
     Active Substance: CERTOLIZUMAB PEGOL
     Indication: Psoriasis

REACTIONS (28)
  - Infection [Unknown]
  - Cardiac disorder [Unknown]
  - Adverse event [Unknown]
  - Skin disorder [Unknown]
  - Gastrointestinal disorder [Unknown]
  - Nervous system disorder [Unknown]
  - Musculoskeletal disorder [Unknown]
  - Connective tissue disorder [Unknown]
  - Benign neoplasm [Unknown]
  - Respiratory disorder [Unknown]
  - Mediastinal disorder [Unknown]
  - Blood disorder [Unknown]
  - Lymphatic disorder [Unknown]
  - Medical procedure [Unknown]
  - Hepatobiliary disease [Unknown]
  - Mental disorder [Unknown]
  - Reproductive tract disorder [Unknown]
  - Breast disorder [Unknown]
  - Immune system disorder [Unknown]
  - Metabolic disorder [Unknown]
  - Malnutrition [Unknown]
  - Polyp [Unknown]
  - General symptom [Unknown]
  - Administration site reaction [Unknown]
  - Cutaneous symptom [Unknown]
  - Diaphragmatic disorder [Unknown]
  - Benign biliary neoplasm [Unknown]
  - Surgery [Unknown]
